FAERS Safety Report 9393966 (Version 2)
Quarter: 2013Q4

REPORT INFORMATION
  Report Type: Spontaneous
  Country: US (occurrence: US)
  Receive Date: 20130710
  Receipt Date: 20131106
  Transmission Date: 20140711
  Serious: Yes (Hospitalization)
  Sender: FDA-Public Use
  Company Number: US-B.I. PHARMACEUTICALS,INC./RIDGEFIELD-2013-BI-20120BP

PATIENT
  Age: 72 Year
  Sex: Female
  Weight: 95.25 kg

DRUGS (7)
  1. PRADAXA [Suspect]
     Indication: ANTICOAGULANT THERAPY
     Dosage: 150 MG
     Route: 048
     Dates: start: 20120710, end: 20120827
  2. PRADAXA [Suspect]
     Indication: ATRIAL FIBRILLATION
  3. PRADAXA [Suspect]
     Indication: PULMONARY EMBOLISM
  4. NORVASC [Concomitant]
  5. ALLOPURINOL [Concomitant]
  6. LOPRESSOR [Concomitant]
  7. OMEGA 3 [Concomitant]

REACTIONS (1)
  - Gastrointestinal haemorrhage [Unknown]
